FAERS Safety Report 8303736-5 (Version None)
Quarter: 2012Q2

REPORT INFORMATION
  Report Type: 
  Country: None (occurrence: None)
  Receive Date: 20120423
  Receipt Date: 20120417
  Transmission Date: 20120825
  Serious: Yes (Other)
  Sender: FDA-Public Use
  Company Number: US-PURDUE-USA-2012-0085545

PATIENT
  Sex: Male

DRUGS (1)
  1. OXYCONTIN [Suspect]
     Indication: LUMBAR VERTEBRAL FRACTURE
     Dosage: 40 MG, TID

REACTIONS (3)
  - CONCUSSION [None]
  - VICTIM OF CRIME [None]
  - HEADACHE [None]
